FAERS Safety Report 24118510 (Version 1)
Quarter: 2024Q3

REPORT INFORMATION
  Report Type: Report from Study
  Country: AU (occurrence: None)
  Receive Date: 20240722
  Receipt Date: 20240722
  Transmission Date: 20241017
  Serious: Yes (Other)
  Sender: ASTRAZENECA
  Company Number: 2022A342528

PATIENT
  Sex: Male

DRUGS (2)
  1. TAGRISSO [Suspect]
     Active Substance: OSIMERTINIB
     Indication: Non-small cell lung cancer
     Route: 048
     Dates: start: 20210427, end: 20210624
  2. IRESSA [Concomitant]
     Active Substance: GEFITINIB
     Dates: start: 20210706

REACTIONS (4)
  - Hepatitis [Unknown]
  - Liver function test abnormal [Unknown]
  - Rash [Unknown]
  - Diarrhoea [Unknown]
